FAERS Safety Report 5109586-5 (Version None)
Quarter: 2006Q3

REPORT INFORMATION
  Report Type: 
  Country: None (occurrence: None)
  Receive Date: 20060918
  Receipt Date: 20060904
  Transmission Date: 20061208
  Serious: Yes (Hospitalization)
  Sender: FDA-Public Use
  Company Number: BE200609000400

PATIENT
  Age: 73 Year
  Sex: Female

DRUGS (3)
  1. FORTEO [Suspect]
     Indication: OSTEOPOROSIS
     Dosage: 20 UG, DAILY (1/D)
     Dates: start: 20060310
  2. FORTEO [Concomitant]
  3. VITAMINE D3 B.O.N. (COLECALCIFEROL) [Concomitant]

REACTIONS (2)
  - FALL [None]
  - WRIST FRACTURE [None]
